FAERS Safety Report 13391392 (Version 2)
Quarter: 2017Q2

REPORT INFORMATION
  Report Type: Spontaneous
  Country: FR (occurrence: FR)
  Receive Date: 20170331
  Receipt Date: 20170406
  Transmission Date: 20170830
  Serious: Yes (Hospitalization, Other)
  Sender: FDA-Public Use
  Company Number: FR-PFIZER INC-2017131273

PATIENT
  Age: 57 Year
  Sex: Female

DRUGS (17)
  1. ATARAX [Concomitant]
     Active Substance: HYDROXYZINE HYDROCHLORIDE
  2. INEXIUM /01479302/ [Concomitant]
     Active Substance: ESOMEPRAZOLE MAGNESIUM
  3. ALPRAZOLAM. [Suspect]
     Active Substance: ALPRAZOLAM
     Indication: ANXIETY
     Dosage: UNK
     Route: 048
     Dates: start: 20170219, end: 20170224
  4. ONDANSETRON [Suspect]
     Active Substance: ONDANSETRON
     Indication: VOMITING
     Dosage: UNK
     Route: 042
     Dates: start: 20170219, end: 20170221
  5. PLAVIX [Suspect]
     Active Substance: CLOPIDOGREL BISULFATE
     Dosage: 300 MG, SINGLE
     Route: 048
     Dates: start: 20170220, end: 20170220
  6. ACETYLSALICYLIC ACID [Suspect]
     Active Substance: ASPIRIN
     Dosage: UNK UNK, SINGLE
     Route: 042
     Dates: start: 20170220, end: 20170220
  7. DEBRIDAT [Suspect]
     Active Substance: TRIMEBUTINE MALEATE
     Indication: PAIN
     Dosage: 50 MG, SINGLE
     Route: 042
     Dates: start: 20170221, end: 20170221
  8. METOCLOPRAMIDE. [Suspect]
     Active Substance: METOCLOPRAMIDE
     Indication: VOMITING
     Dosage: UNK
     Route: 042
     Dates: start: 20170219, end: 20170221
  9. INNOHEP [Suspect]
     Active Substance: TINZAPARIN SODIUM
     Indication: PULMONARY EMBOLISM
     Dosage: 10000 IU, 1X/DAY
     Route: 058
     Dates: start: 20170219
  10. KENZEN [Concomitant]
     Active Substance: CANDESARTAN
  11. TANGANIL [Suspect]
     Active Substance: ACETYLLEUCINE
     Indication: VERTIGO
     Dosage: 500 MG, SINGLE
     Route: 042
     Dates: start: 20170220, end: 20170220
  12. OFLOCET /00731801/ [Suspect]
     Active Substance: OFLOXACIN
     Indication: URINARY TRACT INFECTION
     Dosage: 200 MG, 2X/DAY
     Route: 048
     Dates: start: 20170213, end: 20170218
  13. PHLOROGLUCINOL [Suspect]
     Active Substance: PHLOROGLUCINOL
     Indication: PAIN
     Dosage: UNK
     Route: 042
     Dates: start: 20170220, end: 20170222
  14. LIPANTHYL [Concomitant]
     Active Substance: FENOFIBRATE
  15. PAROXETINE. [Suspect]
     Active Substance: PAROXETINE
     Dosage: 20 MG, SINGLE
     Route: 048
     Dates: start: 20170221, end: 20170221
  16. TEMERIT [Concomitant]
     Active Substance: NEBIVOLOL
  17. TERCIAN /00759301/ [Suspect]
     Active Substance: CYAMEMAZINE
     Indication: ANXIETY
     Dosage: 50 MG, SINGLE
     Route: 048
     Dates: start: 20170221, end: 20170221

REACTIONS (3)
  - Wernicke^s encephalopathy [Unknown]
  - Generalised tonic-clonic seizure [Recovered/Resolved]
  - Rhabdomyolysis [Unknown]

NARRATIVE: CASE EVENT DATE: 20170221
